FAERS Safety Report 7527386-3 (Version None)
Quarter: 2011Q2

REPORT INFORMATION
  Report Type: 
  Country: None (occurrence: None)
  Receive Date: 20110607
  Receipt Date: 20110524
  Transmission Date: 20111010
  Serious: No
  Sender: FDA-Public Use
  Company Number: US-JNJFOC-20110302868

PATIENT
  Sex: Male
  Weight: 111.13 kg

DRUGS (7)
  1. DEPAKOTE [Concomitant]
     Indication: CONVULSION
     Route: 048
  2. LEVITRA [Concomitant]
     Route: 048
  3. PRILOSEC [Concomitant]
     Route: 048
  4. DITROPAN [Concomitant]
     Route: 048
  5. ADVIL LIQUI-GELS [Concomitant]
     Indication: ARTHRALGIA
     Route: 048
  6. LOMOTIL [Concomitant]
     Indication: GASTRIC DISORDER
     Route: 048
  7. STELARA [Suspect]
     Indication: PSORIASIS
     Route: 058
     Dates: start: 20050101, end: 20110311

REACTIONS (7)
  - DISORIENTATION [None]
  - SOMNOLENCE [None]
  - ANAEMIA [None]
  - INFLUENZA LIKE ILLNESS [None]
  - MENTAL DISORDER [None]
  - ANTICONVULSANT DRUG LEVEL INCREASED [None]
  - ARTHRALGIA [None]
